FAERS Safety Report 12904822 (Version 1)
Quarter: 2016Q4

REPORT INFORMATION
  Report Type: Spontaneous
  Country: US (occurrence: US)
  Receive Date: 20161102
  Receipt Date: 20161102
  Transmission Date: 20170207
  Serious: Yes (Other)
  Sender: FDA-Public Use
  Company Number: US-SHIRE-US201615383

PATIENT
  Sex: Female

DRUGS (1)
  1. XIIDRA [Suspect]
     Active Substance: LIFITEGRAST
     Indication: DRY EYE
     Dosage: UNK, UNKNOWN; REPORTED AS 5% SOLUTION FOR DRY EYE
     Route: 047
     Dates: start: 2016, end: 201610

REACTIONS (1)
  - Lacrimal haemorrhage [Unknown]

NARRATIVE: CASE EVENT DATE: 2016
